FAERS Safety Report 22088904 (Version 1)
Quarter: 2023Q1

REPORT INFORMATION
  Report Type: Spontaneous
  Country: US (occurrence: None)
  Receive Date: 20230310
  Receipt Date: 20230310
  Transmission Date: 20230417
  Serious: No
  Sender: FDA-Public Use
  Company Number: None

PATIENT
  Age: 62 Year
  Sex: Male
  Weight: 49.5 kg

DRUGS (6)
  1. XOLAIR [Suspect]
     Active Substance: OMALIZUMAB
     Indication: Dermatitis atopic
     Dosage: OTHER FREQUENCY : EVERY 28 DAYS.;?
     Route: 058
  2. Triamcinolone Ointment [Concomitant]
  3. TRIAMCINOLONE [Concomitant]
     Active Substance: TRIAMCINOLONE
  4. Tacrolimus External Ointment [Concomitant]
  5. Hydrocortisone External Cream [Concomitant]
  6. Cortisone External Cream [Concomitant]

REACTIONS (4)
  - Rash pruritic [None]
  - Skin burning sensation [None]
  - Erythema [None]
  - Skin discolouration [None]

NARRATIVE: CASE EVENT DATE: 20230215
